FAERS Safety Report 7456160-1 (Version None)
Quarter: 2011Q2

REPORT INFORMATION
  Report Type: 
  Country: None (occurrence: None)
  Receive Date: 20110503
  Receipt Date: 20110420
  Transmission Date: 20111010
  Serious: Yes (Hospitalization)
  Sender: FDA-Public Use
  Company Number: GB-TYCO HEALTHCARE/MALLINCKRODT-T201100825

PATIENT
  Age: 38 Week
  Sex: Male
  Weight: 3.38 kg

DRUGS (3)
  1. DIAMORPHINE [Concomitant]
     Dosage: UNK
  2. FLUOXETINE [Suspect]
     Dosage: 40 MG, QD FROM 30 WEEKS GESTATION
  3. FLUOXETINE [Suspect]
     Dosage: 20 MG, QD

REACTIONS (2)
  - OXYGEN SATURATION DECREASED [None]
  - CEREBRAL DISORDER [None]
